FAERS Safety Report 12640390 (Version 3)
Quarter: 2016Q4

REPORT INFORMATION
  Report Type: Report from Study
  Country: US (occurrence: US)
  Receive Date: 20160810
  Receipt Date: 20161108
  Transmission Date: 20170207
  Serious: Yes (Hospitalization)
  Sender: FDA-Public Use
  Company Number: US-EISAI MEDICAL RESEARCH-EC-2016-017676

PATIENT
  Age: 57 Year
  Sex: Female

DRUGS (3)
  1. LENVIMA [Suspect]
     Active Substance: LENVATINIB
     Indication: THYROID CANCER
     Route: 048
     Dates: start: 20160603, end: 201607
  2. LENVIMA [Suspect]
     Active Substance: LENVATINIB
     Route: 048
     Dates: start: 2016, end: 201610
  3. LENVIMA [Suspect]
     Active Substance: LENVATINIB
     Route: 048
     Dates: start: 20160715, end: 201607

REACTIONS (8)
  - Rash [Unknown]
  - Abdominal pain upper [Not Recovered/Not Resolved]
  - Platelet count decreased [Recovering/Resolving]
  - Blister [Recovering/Resolving]
  - Constipation [Not Recovered/Not Resolved]
  - Hypertension [Unknown]
  - Decreased appetite [Recovered/Resolved]
  - Alopecia [Unknown]

NARRATIVE: CASE EVENT DATE: 201606
